FAERS Safety Report 25725941 (Version 1)
Quarter: 2025Q3

REPORT INFORMATION
  Report Type: Spontaneous
  Country: US (occurrence: None)
  Receive Date: 20250826
  Receipt Date: 20250826
  Transmission Date: 20251021
  Serious: Yes (Other)
  Sender: ENCUBE ETHICALS PVT. LTD.
  Company Number: US-Encube-002178

PATIENT
  Age: 60 Year
  Sex: Female

DRUGS (5)
  1. FLUOROURACIL [Suspect]
     Active Substance: FLUOROURACIL
     Indication: Adenocarcinoma pancreas
  2. LEUCOVORIN [Concomitant]
     Active Substance: LEUCOVORIN\LEUCOVORIN CALCIUM
     Indication: Adenocarcinoma pancreas
  3. IRINOTECAN [Concomitant]
     Active Substance: IRINOTECAN
     Indication: Adenocarcinoma pancreas
  4. OXALIPLATIN [Concomitant]
     Active Substance: OXALIPLATIN
     Indication: Adenocarcinoma pancreas
  5. FLUOROURACIL [Suspect]
     Active Substance: FLUOROURACIL
     Indication: Adenocarcinoma pancreas

REACTIONS (4)
  - Arteriospasm coronary [Recovered/Resolved]
  - Off label use [Unknown]
  - Myocardial stunning [Recovered/Resolved]
  - Cardiotoxicity [Recovered/Resolved]
